FAERS Safety Report 5140144-2 (Version None)
Quarter: 2006Q4

REPORT INFORMATION
  Report Type: 
  Country: None (occurrence: None)
  Receive Date: 20061031
  Receipt Date: 20061010
  Transmission Date: 20070319
  Serious: Yes (Other)
  Sender: FDA-Public Use
  Company Number: NL-ROCHE-466430

PATIENT
  Age: 55 Year
  Sex: Female
  Weight: 75 kg

DRUGS (4)
  1. RIVOTRIL [Suspect]
     Dosage: DOSAGE REPORTED AS 2X1 IF NECESSARY.
     Route: 048
     Dates: start: 20060817, end: 20061015
  2. PERSANTIN [Concomitant]
     Route: 048
     Dates: start: 20060725
  3. NORMISON [Concomitant]
     Dosage: DOSAGE REGIMEN REPORTED IS 1X 1 IF NECESSARY
     Route: 048
     Dates: start: 20051219
  4. CETIRIZINE HCL [Concomitant]
     Dosage: DOSAGE REPORTED AS 1X1 IF NECESSARY
     Route: 048
     Dates: start: 20041221

REACTIONS (1)
  - FEELING HOT [None]
